FAERS Safety Report 9166340 (Version 2)
Quarter: 2013Q2

REPORT INFORMATION
  Report Type: Report from Study
  Country: DE (occurrence: DE)
  Receive Date: 20130315
  Receipt Date: 20130501
  Transmission Date: 20140414
  Serious: Yes (Death)
  Sender: FDA-Public Use
  Company Number: DE-ACTELION-A-US2013-80745

PATIENT
  Age: 68 Year
  Sex: Male

DRUGS (2)
  1. VENTAVIS [Suspect]
     Indication: PULMONARY ARTERIAL HYPERTENSION
     Dosage: 5 MCG, QID
     Route: 055
     Dates: end: 20130303
  2. VENTAVIS [Suspect]
     Dosage: 2.5 MCG, Q4HRS
     Route: 055
     Dates: start: 20130305

REACTIONS (2)
  - Death [Fatal]
  - Dizziness [Unknown]
